FAERS Safety Report 16391700 (Version 18)
Quarter: 2021Q4

REPORT INFORMATION
  Report Type: Spontaneous
  Country: JP (occurrence: JP)
  Receive Date: 20190605
  Receipt Date: 20211231
  Transmission Date: 20220303
  Serious: Yes (Death, Hospitalization, Other)
  Sender: FDA-Public Use
  Company Number: JP-ONO-2019JP019620

PATIENT
  Age: 54 Year
  Sex: Female
  Weight: 30.7 kg

DRUGS (6)
  1. PARSABIV [Suspect]
     Active Substance: ETELCALCETIDE HYDROCHLORIDE
     Indication: Hyperparathyroidism secondary
     Dosage: 2.5 MG, Q56H
     Route: 010
     Dates: start: 20181112
  2. WARFARIN [Suspect]
     Active Substance: WARFARIN
     Indication: Mitral valve stenosis
     Dosage: 0.75 MG
     Route: 048
     Dates: end: 20211115
  3. ASPIRIN [Suspect]
     Active Substance: ASPIRIN
     Indication: Mitral valve stenosis
     Dosage: 100 MG, AFTER BREAKFAST
     Route: 048
  4. ALFACALCIDOL [Concomitant]
     Active Substance: ALFACALCIDOL
     Dosage: 0.25 MICROGRAM, QD
     Route: 048
     Dates: start: 20181010
  5. FOSRENOL [Concomitant]
     Active Substance: LANTHANUM CARBONATE
     Dosage: 1500 MG
     Route: 048
  6. ALFACALCIDOL [Concomitant]
     Active Substance: ALFACALCIDOL
     Dosage: 0.5 MCG, AFTER EACH MEAL
     Route: 065
     Dates: start: 20181010

REACTIONS (10)
  - Adrenal insufficiency [Unknown]
  - Uveitis [Unknown]
  - Haemorrhage subcutaneous [Fatal]
  - Subcutaneous haematoma [Fatal]
  - Septic shock [Fatal]
  - Intestinal perforation [Fatal]
  - Mitral valve stenosis [Recovering/Resolving]
  - Infectious pleural effusion [Recovered/Resolved]
  - Pyrexia [Recovered/Resolved]
  - Otitis externa [Recovered/Resolved]

NARRATIVE: CASE EVENT DATE: 20190403
